FAERS Safety Report 7286727-5 (Version None)
Quarter: 2011Q1

REPORT INFORMATION
  Report Type: 
  Country: None (occurrence: None)
  Receive Date: 20110210
  Receipt Date: 20110204
  Transmission Date: 20110831
  Serious: Yes (Other)
  Sender: FDA-Public Use
  Company Number: US-US-EMD SERONO, INC.-7019973

PATIENT
  Sex: Female
  Weight: 84 kg

DRUGS (1)
  1. REBIF [Suspect]
     Indication: MULTIPLE SCLEROSIS
     Route: 058
     Dates: start: 20090827, end: 20100101

REACTIONS (2)
  - BREAST CANCER IN SITU [None]
  - CENTRAL NERVOUS SYSTEM LESION [None]
